FAERS Safety Report 19738622 (Version 1)
Quarter: 2021Q3

REPORT INFORMATION
  Report Type: Spontaneous
  Country: US (occurrence: US)
  Receive Date: 20210824
  Receipt Date: 20210824
  Transmission Date: 20211014
  Serious: No
  Sender: FDA-Public Use
  Company Number: US-BAYER-2021-193999

PATIENT
  Age: 25 Year
  Sex: Female

DRUGS (1)
  1. MIRENA [Suspect]
     Active Substance: LEVONORGESTREL
     Dosage: 20 ?G, CONT
     Route: 015
     Dates: start: 20210811, end: 20210811

REACTIONS (3)
  - Complication of device insertion [None]
  - Device difficult to use [None]
  - Patient-device incompatibility [None]

NARRATIVE: CASE EVENT DATE: 20210811
